FAERS Safety Report 4499900-6 (Version None)
Quarter: 2004Q4

REPORT INFORMATION
  Report Type: 
  Country: None (occurrence: None)
  Receive Date: 20041112
  Receipt Date: 20041029
  Transmission Date: 20050328
  Serious: Yes (Hospitalization)
  Sender: FDA-Public Use
  Company Number: DEWYE165102NOV04

PATIENT
  Sex: Female
  Weight: 59 kg

DRUGS (4)
  1. ENBREL [Suspect]
     Indication: POLYARTHRITIS
     Dosage: UNKNOWN
     Route: 058
  2. HYDROXYCHLOROQUINE SULFATE [Suspect]
     Indication: POLYARTHRITIS
     Dosage: UNKNOWN
     Route: 048
  3. METHOTREXATE [Suspect]
     Indication: POLYARTHRITIS
     Dosage: UNKNOWN
  4. PROGRAF [Concomitant]
     Dates: start: 20040301

REACTIONS (1)
  - UVEITIS [None]
